FAERS Safety Report 15724670 (Version 1)
Quarter: 2018Q4

REPORT INFORMATION
  Report Type: Spontaneous
  Country: US (occurrence: US)
  Receive Date: 20181214
  Receipt Date: 20181214
  Transmission Date: 20190205
  Serious: Yes (Other)
  Sender: FDA-Public Use
  Company Number: US-OTSUKA-2018_016492

PATIENT
  Sex: Male

DRUGS (15)
  1. LEXAPRO [Concomitant]
     Active Substance: ESCITALOPRAM OXALATE
     Indication: PRODUCT USED FOR UNKNOWN INDICATION
     Dosage: 20 MG, QD (IN MORNING)
     Route: 065
  2. ABILIFY [Suspect]
     Active Substance: ARIPIPRAZOLE
     Indication: PERSONALITY DISORDER
  3. ABILIFY [Suspect]
     Active Substance: ARIPIPRAZOLE
     Indication: ANXIETY
  4. ABILIFY [Suspect]
     Active Substance: ARIPIPRAZOLE
     Indication: EATING DISORDER
  5. SEROQUEL [Concomitant]
     Active Substance: QUETIAPINE FUMARATE
     Indication: PRODUCT USED FOR UNKNOWN INDICATION
     Dosage: 300 MG, QD (IN EVENING)
     Route: 065
  6. ABILIFY [Suspect]
     Active Substance: ARIPIPRAZOLE
     Indication: MAJOR DEPRESSION
     Dosage: 5/10MG, QD
     Route: 065
     Dates: start: 2003, end: 2013
  7. ABILIFY [Suspect]
     Active Substance: ARIPIPRAZOLE
     Indication: SOCIAL ANXIETY DISORDER
  8. ABILIFY [Suspect]
     Active Substance: ARIPIPRAZOLE
     Indication: BIPOLAR DISORDER
     Dosage: UNK
     Route: 065
     Dates: start: 2008, end: 2014
  9. ABILIFY [Suspect]
     Active Substance: ARIPIPRAZOLE
     Indication: AGITATION
  10. ABILIFY [Suspect]
     Active Substance: ARIPIPRAZOLE
     Indication: INSOMNIA
  11. ABILIFY [Suspect]
     Active Substance: ARIPIPRAZOLE
     Indication: IRRITABILITY
  12. ABILIFY [Suspect]
     Active Substance: ARIPIPRAZOLE
     Indication: OBSESSIVE-COMPULSIVE DISORDER
  13. XANAX [Concomitant]
     Active Substance: ALPRAZOLAM
     Indication: PRODUCT USED FOR UNKNOWN INDICATION
     Dosage: 1 MG, TID
     Route: 065
  14. REQUIP [Concomitant]
     Active Substance: ROPINIROLE HYDROCHLORIDE
     Indication: PARKINSON^S DISEASE
     Dosage: UNK
     Route: 065
     Dates: start: 20151123, end: 201612
  15. REQUIP [Concomitant]
     Active Substance: ROPINIROLE HYDROCHLORIDE
     Indication: RESTLESS LEGS SYNDROME

REACTIONS (31)
  - Arthritis [Unknown]
  - Dyspnoea [Unknown]
  - Hypercholesterolaemia [Unknown]
  - Obsessive-compulsive disorder [Unknown]
  - Suicide attempt [Recovered/Resolved]
  - Suicidal ideation [Recovered/Resolved]
  - Road traffic accident [Unknown]
  - Compulsive sexual behaviour [Recovered/Resolved]
  - Palpitations [Unknown]
  - Imprisonment [Unknown]
  - Cold sweat [Unknown]
  - Insomnia [Unknown]
  - Economic problem [Unknown]
  - Product use in unapproved indication [Unknown]
  - Coma [Unknown]
  - Mental disorder [Unknown]
  - Panic reaction [Unknown]
  - Head injury [Unknown]
  - Migraine [Unknown]
  - Limb injury [Unknown]
  - Gambling disorder [Recovered/Resolved]
  - Tremor [Unknown]
  - Compulsive hoarding [Recovered/Resolved]
  - Eating disorder [Recovered/Resolved]
  - Gastrooesophageal reflux disease [Unknown]
  - Compulsive shopping [Recovered/Resolved]
  - Chest pain [Unknown]
  - Weight decreased [Unknown]
  - Injury [Unknown]
  - Chronic obstructive pulmonary disease [Unknown]
  - Partner stress [Unknown]

NARRATIVE: CASE EVENT DATE: 2003
